FAERS Safety Report 7097849-6 (Version None)
Quarter: 2010Q4

REPORT INFORMATION
  Report Type: 
  Country: None (occurrence: None)
  Receive Date: 20101103
  Receipt Date: 20101019
  Transmission Date: 20110411
  Serious: Yes (Other)
  Sender: FDA-Public Use
  Company Number: AUR-APL-2010-02537

PATIENT
  Sex: Male
  Weight: 97.5234 kg

DRUGS (18)
  1. METOPROLOL 25MG [Suspect]
     Indication: PRODUCT USED FOR UNKNOWN INDICATION
     Dosage: 1/2 TAB, DAILY;
  2. WARFARIN 2 MG [Suspect]
     Indication: PRODUCT USED FOR UNKNOWN INDICATION
     Dosage: 3 TABS, QHS,
  3. LIPITOR [Suspect]
     Indication: PRODUCT USED FOR UNKNOWN INDICATION
     Dosage: 20MG, DAILY;
  4. FUROSEMIDE [Suspect]
     Indication: PRODUCT USED FOR UNKNOWN INDICATION
     Dosage: 20MG, 3TABSAM/2TABSPM;
  5. ASPIRIN [Suspect]
     Indication: PRODUCT USED FOR UNKNOWN INDICATION
     Dosage: 81MG, DAILY;
  6. LEVOTHYROXINE [Suspect]
     Indication: PRODUCT USED FOR UNKNOWN INDICATION
     Dosage: 75MCG, DAILY;
  7. POTASSIUM [Suspect]
     Indication: PRODUCT USED FOR UNKNOWN INDICATION
     Dosage: 20MEQ, DAILY
  8. MILTAG [Concomitant]
  9. VITAMIN E [Concomitant]
  10. B COMPLEX LIQUID [Concomitant]
  11. COQ10 [Concomitant]
  12. FISH OIL/OMEGA 3 [Concomitant]
  13. ASCORBIC ACID [Concomitant]
  14. ALPHALIPOIC ACID [Concomitant]
  15. GINKGO BILOBA [Concomitant]
  16. NIACIN [Concomitant]
  17. MELATONIN [Concomitant]
  18. ATROVENT [Concomitant]

REACTIONS (5)
  - ASTHENIA [None]
  - CONFUSIONAL STATE [None]
  - DIZZINESS [None]
  - FATIGUE [None]
  - SLEEP APNOEA SYNDROME [None]
